FAERS Safety Report 7280502-3 (Version None)
Quarter: 2011Q1

REPORT INFORMATION
  Report Type: 
  Country: None (occurrence: None)
  Receive Date: 20110208
  Receipt Date: 20110127
  Transmission Date: 20110831
  Serious: Yes (Other)
  Sender: FDA-Public Use
  Company Number: PHHY2011CZ06779

PATIENT
  Sex: Female

DRUGS (4)
  1. TAFEN [Concomitant]
  2. AMOXICILLIN AND CLAVULANATE POTASSIUM [Suspect]
     Indication: ACUTE SINUSITIS
     Dosage: 1 G, QD, 2 TABLETS A DAY
     Route: 048
     Dates: start: 20110123, end: 20110126
  3. DITHIADEN [Concomitant]
  4. CODEINE SULFATE [Concomitant]
     Dosage: 30 MG, TID

REACTIONS (4)
  - PRURITUS [None]
  - VOMITING [None]
  - TREMOR [None]
  - GASTROENTERITIS [None]
